FAERS Safety Report 9944093 (Version 2)
Quarter: 2014Q2

REPORT INFORMATION
  Report Type: Report from Study
  Country: AR (occurrence: AR)
  Receive Date: 20140303
  Receipt Date: 20140408
  Transmission Date: 20141212
  Serious: No
  Sender: FDA-Public Use
  Company Number: PHHY2014AR025532

PATIENT
  Sex: Male

DRUGS (4)
  1. DIOVAN [Suspect]
     Indication: HYPERTENSION
     Dosage: 1.5 DF (160MG) DAILY
     Route: 048
  2. DIOVAN [Suspect]
     Dosage: UNK DF (320MG), UNK
     Route: 048
  3. DIOVAN [Suspect]
     Dosage: 1.5 MG (160MG), DAILY
     Route: 048
  4. DIOVAN [Suspect]
     Dosage: UNK DF (160MG), UNK

REACTIONS (4)
  - Gout [Recovering/Resolving]
  - Blood uric acid increased [Recovering/Resolving]
  - Hypertension [Recovering/Resolving]
  - Wrong technique in drug usage process [Recovering/Resolving]
